FAERS Safety Report 12048311 (Version 1)
Quarter: 2016Q1

REPORT INFORMATION
  Report Type: Spontaneous
  Country: TR (occurrence: TR)
  Receive Date: 20160209
  Receipt Date: 20160209
  Transmission Date: 20160526
  Serious: Yes (Hospitalization)
  Sender: FDA-Public Use
  Company Number: TR-SUN PHARMACEUTICAL INDUSTRIES LTD-2016R1-111131

PATIENT
  Age: 26 Year
  Sex: Female

DRUGS (1)
  1. ISONIAZID. [Suspect]
     Active Substance: ISONIAZID
     Indication: PRODUCT USED FOR UNKNOWN INDICATION
     Route: 065

REACTIONS (7)
  - Hyperglycaemia [Unknown]
  - Toxicity to various agents [Unknown]
  - Injury [Unknown]
  - Seizure [Unknown]
  - Intentional overdose [Unknown]
  - Lactic acidosis [Unknown]
  - Extradural haematoma [Unknown]
